FAERS Safety Report 10756019 (Version 1)
Quarter: 2015Q1

REPORT INFORMATION
  Report Type: Spontaneous
  Country: DE (occurrence: DE)
  Receive Date: 20150202
  Receipt Date: 20150202
  Transmission Date: 20150721
  Serious: Yes (Congenital Anomaly, Other)
  Sender: FDA-Public Use
  Company Number: DE-MYLANLABS-2015M1002482

PATIENT

DRUGS (4)
  1. SODIUM CARBONATE [Concomitant]
     Active Substance: SODIUM CARBONATE
     Indication: HYPEROXALURIA
     Route: 064
  2. PYRIDOXINE [Concomitant]
     Active Substance: PYRIDOXINE
     Indication: HYPEROXALURIA
     Dosage: 100MG/DAY
     Route: 064
  3. ALLOPURINOL. [Suspect]
     Active Substance: ALLOPURINOL
     Indication: HYPEROXALURIA
     Dosage: 100MG/DAY DURING WHOLE PREGNANCY
     Route: 064
  4. HYDROCHLOROTHIAZIDE. [Concomitant]
     Active Substance: HYDROCHLOROTHIAZIDE
     Indication: HYPEROXALURIA
     Dosage: 12.5MG/DAY
     Route: 064

REACTIONS (14)
  - Cleft lip and palate [Not Recovered/Not Resolved]
  - Hepatosplenomegaly [Not Recovered/Not Resolved]
  - Osteopenia [Not Recovered/Not Resolved]
  - Conductive deafness [Not Recovered/Not Resolved]
  - Microphthalmos [Not Recovered/Not Resolved]
  - Micropenis [Not Recovered/Not Resolved]
  - Foetal exposure during pregnancy [Not Recovered/Not Resolved]
  - Renal hypoplasia [Not Recovered/Not Resolved]
  - Retrognathia [Not Recovered/Not Resolved]
  - Low set ears [Not Recovered/Not Resolved]
  - Cholestasis [Not Recovered/Not Resolved]
  - Nervous system disorder [Not Recovered/Not Resolved]
  - Teratogenicity [Not Recovered/Not Resolved]
  - Cryptorchism [Not Recovered/Not Resolved]
